FAERS Safety Report 21957079 (Version 1)
Quarter: 2023Q1

REPORT INFORMATION
  Report Type: Spontaneous
  Country: US (occurrence: None)
  Receive Date: 20230203
  Receipt Date: 20230203
  Transmission Date: 20230417
  Serious: Yes (Disabling, Other)
  Sender: FDA-Public Use
  Company Number: None

PATIENT
  Age: 46 Year
  Sex: Female
  Weight: 90 kg

DRUGS (1)
  1. ARTIFICIAL TEARS LUBRICANT EYE DROPS (CARBOXYMETHYLCELLULOSE SODIUM) [Suspect]
     Active Substance: CARBOXYMETHYLCELLULOSE SODIUM
     Indication: Dry eye
     Dosage: 2 DROP(S) AS NEEDED ?
     Route: 047
     Dates: start: 20221120, end: 20230203

REACTIONS (18)
  - Vision blurred [None]
  - Eye pruritus [None]
  - Eye pain [None]
  - Chest pain [None]
  - Pyrexia [None]
  - Chills [None]
  - Headache [None]
  - Arthralgia [None]
  - Ear pruritus [None]
  - Ear pain [None]
  - Nausea [None]
  - Dyspnoea [None]
  - Fatigue [None]
  - Cough [None]
  - Pelvic pain [None]
  - Viral infection [None]
  - Malaise [None]
  - Loss of personal independence in daily activities [None]

NARRATIVE: CASE EVENT DATE: 20230107
